FAERS Safety Report 13503731 (Version 4)
Quarter: 2017Q2

REPORT INFORMATION
  Report Type: Spontaneous
  Country: US (occurrence: US)
  Receive Date: 20170502
  Receipt Date: 20170628
  Transmission Date: 20170830
  Serious: Yes (Life-Threatening, Other)
  Sender: FDA-Public Use
  Company Number: US-PFIZER INC-2017188936

PATIENT
  Age: 57 Year
  Sex: Female

DRUGS (3)
  1. CEFOXITIN SODIUM [Suspect]
     Active Substance: CEFOXITIN SODIUM
     Indication: COLITIS
     Dosage: UNK
  2. METRONIDAZOLE. [Suspect]
     Active Substance: METRONIDAZOLE
     Indication: COLITIS
     Dosage: UNK
  3. MORPHINE SULFATE. [Suspect]
     Active Substance: MORPHINE SULFATE
     Indication: COLITIS
     Dosage: UNK

REACTIONS (4)
  - Systemic mastocytosis [Unknown]
  - Anaphylactic reaction [Unknown]
  - Cardiac arrest [Recovering/Resolving]
  - Circulatory collapse [Recovering/Resolving]
